FAERS Safety Report 17229481 (Version 3)
Quarter: 2020Q1

REPORT INFORMATION
  Report Type: Spontaneous
  Country: RU (occurrence: RU)
  Receive Date: 20200103
  Receipt Date: 20200218
  Transmission Date: 20200409
  Serious: Yes (Other)
  Sender: FDA-Public Use
  Company Number: RU-BAYER-2019-207825

PATIENT
  Age: 39 Year
  Sex: Female

DRUGS (13)
  1. QLAIRA [Suspect]
     Active Substance: DIENOGEST\ESTRADIOL VALERATE
     Indication: MENORRHAGIA
  2. FEMOSTON [Concomitant]
     Active Substance: DYDROGESTERONE\ESTRADIOL
  3. MOTILIUM [Concomitant]
     Active Substance: DOMPERIDONE
  4. HIRABEZOL [Concomitant]
     Active Substance: RABEPRAZOLE SODIUM
     Dosage: 20 MG/24HR, QD
     Route: 048
  5. CREON [Concomitant]
     Active Substance: PANCRELIPASE AMYLASE\PANCRELIPASE LIPASE\PANCRELIPASE PROTEASE
  6. PHOSPHALUGEL [ALUMINIUM PHOSPHATE] [Concomitant]
     Dosage: UNK UNK, PRN
  7. GRANDAXIN [Concomitant]
     Active Substance: TOFISOPAM
     Indication: CHEST PAIN
  8. BIFIDUM BAKTERINAS [Concomitant]
     Active Substance: PROBIOTICS NOS
  9. CONCOR [Concomitant]
     Active Substance: BISOPROLOL FUMARATE
  10. IMMUNINE STIM [Concomitant]
  11. DUSPATALIN [MEBEVERINE EMBONATE] [Concomitant]
     Active Substance: MEBEVERINE EMBONATE
  12. CREON [Concomitant]
     Active Substance: PANCRELIPASE AMYLASE\PANCRELIPASE LIPASE\PANCRELIPASE PROTEASE
     Dosage: UNK
  13. QLAIRA [Suspect]
     Active Substance: DIENOGEST\ESTRADIOL VALERATE
     Indication: CONTRACEPTION
     Dosage: `1 DF, QD
     Route: 048
     Dates: start: 20191115, end: 20191123

REACTIONS (8)
  - Dyspepsia [Recovered/Resolved]
  - Product monitoring error [None]
  - Chest pain [Recovered/Resolved]
  - Vomiting [Recovered/Resolved]
  - Abdominal pain [Recovered/Resolved]
  - Contraindicated product administered [None]
  - Pancreatic failure [Recovered/Resolved]
  - Nausea [Recovered/Resolved]

NARRATIVE: CASE EVENT DATE: 201911
